FAERS Safety Report 9493974 (Version 1)
Quarter: 2013Q3

REPORT INFORMATION
  Report Type: Spontaneous
  Country: US (occurrence: US)
  Receive Date: 20130903
  Receipt Date: 20130903
  Transmission Date: 20140515
  Serious: No
  Sender: FDA-Public Use
  Company Number: US-009507513-1309USA000702

PATIENT
  Sex: Female
  Weight: 56.69 kg

DRUGS (2)
  1. IMPLANON [Suspect]
     Indication: CONTRACEPTION
     Dosage: UNK
     Route: 059
     Dates: start: 20110810
  2. CLARITIN [Concomitant]
     Dosage: UNK

REACTIONS (1)
  - Implant site pain [Not Recovered/Not Resolved]
